FAERS Safety Report 23513264 (Version 2)
Quarter: 2024Q1

REPORT INFORMATION
  Report Type: Report from Study
  Country: GB (occurrence: GB)
  Receive Date: 20240212
  Receipt Date: 20240320
  Transmission Date: 20240410
  Serious: Yes (Hospitalization, Other)
  Sender: FDA-Public Use
  Company Number: GB-SANDOZ-SDZ2024GB012867

PATIENT
  Sex: Male

DRUGS (1)
  1. HYRIMOZ [Suspect]
     Active Substance: ADALIMUMAB-ADAZ
     Indication: Psoriasis
     Dosage: 40 MG, EOW (Q2W)
     Route: 058

REACTIONS (5)
  - Feeling abnormal [Unknown]
  - Viral infection [Unknown]
  - Psoriatic arthropathy [Unknown]
  - Illness [Unknown]
  - Drug ineffective [Unknown]
